FAERS Safety Report 12657429 (Version 1)
Quarter: 2016Q3

REPORT INFORMATION
  Report Type: Spontaneous
  Country: CH (occurrence: CH)
  Receive Date: 20160816
  Receipt Date: 20160816
  Transmission Date: 20161109
  Serious: Yes (Hospitalization)
  Sender: FDA-Public Use
  Company Number: CH-TEVA-682949ISR

PATIENT
  Age: 51 Year
  Sex: Female

DRUGS (16)
  1. VINCRISTIN-TEVA [Suspect]
     Active Substance: VINCRISTINE
     Dosage: 2 MILLIGRAM DAILY; INDUCTION CHEMOTHERAPY
     Route: 041
     Dates: start: 20160509, end: 20160509
  2. VALTREX [Concomitant]
     Active Substance: VALACYCLOVIR HYDROCHLORIDE
     Dosage: 1000 MILLIGRAM DAILY;
     Route: 048
  3. METHYLPREDNISOLONE. [Concomitant]
     Active Substance: METHYLPREDNISOLONE
     Route: 065
     Dates: end: 20160621
  4. CYTARABIN ACCORD [Suspect]
     Active Substance: CYTARABINE
     Dosage: 4 ADMINISTRATIONS OF 40 MG EACH
     Route: 037
     Dates: start: 20160516, end: 20160621
  5. NEUPOGEN [Concomitant]
     Active Substance: FILGRASTIM
     Dosage: 48000000 IU (INTERNATIONAL UNIT) DAILY;
     Route: 058
     Dates: start: 20160616
  6. VINDESINE [Concomitant]
     Active Substance: VINDESINE
     Route: 065
     Dates: start: 2016, end: 20160707
  7. DEXAMETHASONE. [Concomitant]
     Active Substance: DEXAMETHASONE
     Dosage: INDUCTION CHEMOTHERAPY
     Route: 065
  8. VINCRISTIN-TEVA [Suspect]
     Active Substance: VINCRISTINE
     Dosage: 2 MILLIGRAM DAILY; INDUCTION CHEMOTHERAPY
     Route: 041
     Dates: start: 20160523, end: 20160523
  9. BACTRIM [Concomitant]
     Active Substance: SULFAMETHOXAZOLE\TRIMETHOPRIM
     Route: 048
  10. DAFALGAN [Concomitant]
     Active Substance: ACETAMINOPHEN
     Dosage: AS NEEDED
     Route: 065
  11. VINCRISTIN-TEVA [Suspect]
     Active Substance: VINCRISTINE
     Dosage: 2 MILLIGRAM DAILY; INDUCTION CHEMOTHERAPY
     Route: 041
     Dates: start: 20160530, end: 20160530
  12. METHOTREXATE FARMOS [Suspect]
     Active Substance: METHOTREXATE
     Dosage: 4 ADMINISTRATIONS OF 15 MG EACH
     Route: 037
     Dates: start: 20160502, end: 20160621
  13. ZOFRAN [Concomitant]
     Active Substance: ONDANSETRON HYDROCHLORIDE
     Dosage: AS NEEDED
     Route: 065
  14. VINCRISTIN-TEVA [Suspect]
     Active Substance: VINCRISTINE
     Dosage: 2 MILLIGRAM DAILY; INDUCTION CHEMOTHERAPY
     Route: 041
     Dates: start: 20160516, end: 20160516
  15. LEUCOVORIN. [Concomitant]
     Active Substance: LEUCOVORIN
     Route: 048
  16. GLIVEC [Concomitant]
     Active Substance: IMATINIB MESYLATE
     Dosage: 800 MILLIGRAM DAILY; INDUCTION CHEMOTHERAPY
     Route: 048
     Dates: start: 20160611

REACTIONS (5)
  - Muscular weakness [Not Recovered/Not Resolved]
  - Paraesthesia [Not Recovered/Not Resolved]
  - Polyneuropathy [Not Recovered/Not Resolved]
  - Radiculopathy [None]
  - Acute motor axonal neuropathy [Not Recovered/Not Resolved]

NARRATIVE: CASE EVENT DATE: 201606
